FAERS Safety Report 7407213-5 (Version None)
Quarter: 2011Q2

REPORT INFORMATION
  Report Type: 
  Country: None (occurrence: None)
  Receive Date: 20110411
  Receipt Date: 20110328
  Transmission Date: 20111010
  Serious: Yes (Hospitalization)
  Sender: FDA-Public Use
  Company Number: PHHY2010DE74527

PATIENT
  Age: 36 Year
  Sex: Male

DRUGS (2)
  1. GLEEVEC [Suspect]
     Indication: GASTROINTESTINAL STROMAL TUMOUR
     Dosage: 400 MG, UNK
     Route: 048
     Dates: end: 20101026
  2. GLEEVEC [Suspect]
     Dosage: 400 MG, QID
     Route: 048
     Dates: start: 20101026, end: 20101030

REACTIONS (5)
  - MUCOSAL INFLAMMATION [None]
  - ASTHENIA [None]
  - ACCIDENTAL OVERDOSE [None]
  - ORAL CANDIDIASIS [None]
  - FATIGUE [None]
